FAERS Safety Report 6388577-0 (Version None)
Quarter: 2009Q4

REPORT INFORMATION
  Report Type: 
  Country: None (occurrence: None)
  Receive Date: 20091005
  Receipt Date: 20090926
  Transmission Date: 20100525
  Serious: Yes (Death, Other)
  Sender: FDA-Public Use
  Company Number: US-BAYER-200933893GPV

PATIENT
  Sex: Male

DRUGS (2)
  1. DACARBAZINE [Suspect]
     Indication: METASTATIC MALIGNANT MELANOMA
     Dosage: FOR 3 DAYS EVERY MONTH
     Route: 042
     Dates: start: 19771001, end: 19780331
  2. DACARBAZINE [Suspect]
     Dosage: EVERY 3 MONTHS
     Route: 042
     Dates: start: 19780401, end: 19790412

REACTIONS (3)
  - APLASTIC ANAEMIA [None]
  - FATIGUE [None]
  - LEUKAEMIA [None]
